FAERS Safety Report 9672391 (Version 1)
Quarter: 2013Q4

REPORT INFORMATION
  Report Type: Spontaneous
  Country: BR (occurrence: None)
  Receive Date: 20131105
  Receipt Date: 20131105
  Transmission Date: 20140711
  Serious: Yes (Other)
  Sender: FDA-Public Use
  Company Number: SYM-2013-12310

PATIENT
  Age: 57 Year
  Sex: Male

DRUGS (5)
  1. ZOVIRAX (ACICLOVIR) (CREAM) (ACICLOVIR) [Suspect]
     Indication: OPHTHALMIC HERPES SIMPLEX
     Dosage: 1 APPLICATION, OPHTHALMIC
     Route: 047
     Dates: start: 201112, end: 201112
  2. ACYCLOVIR (ACICLOVIR) (ACICLOVIR) [Concomitant]
  3. ZOVIRAX (ACICLOVIR) (ACICLOVIR) [Concomitant]
  4. ACULAR (KETOROLAC TROMETHAMINE) (KETOROLAC TROMETHAMINE) [Concomitant]
  5. SYSTANE [Concomitant]

REACTIONS (3)
  - Blindness [None]
  - Drug dispensing error [None]
  - Incorrect route of drug administration [None]
